FAERS Safety Report 23566638 (Version 2)
Quarter: 2024Q1

REPORT INFORMATION
  Report Type: Spontaneous
  Country: US (occurrence: US)
  Receive Date: 20240226
  Receipt Date: 20240304
  Transmission Date: 20240410
  Serious: No
  Sender: FDA-Public Use
  Company Number: US-SANDOZ-SDZ2024US020035

PATIENT

DRUGS (1)
  1. DORZOLAMIDE AND TIMOLOL [Suspect]
     Active Substance: DORZOLAMIDE HYDROCHLORIDE\TIMOLOL MALEATE
     Indication: Product used for unknown indication
     Dosage: 2.23+0.68% 10ML
     Route: 065

REACTIONS (2)
  - Eye pain [Unknown]
  - Eye irritation [Unknown]
